FAERS Safety Report 6097336-8 (Version None)
Quarter: 2009Q1

REPORT INFORMATION
  Report Type: 
  Country: None (occurrence: None)
  Receive Date: 20090227
  Receipt Date: 20090225
  Transmission Date: 20090719
  Serious: Yes (Death)
  Sender: FDA-Public Use
  Company Number: MX-ASTRAZENECA-2009UW05323

PATIENT
  Age: 32 Year
  Sex: Female
  Weight: 60 kg

DRUGS (8)
  1. SEROQUEL XR [Suspect]
     Indication: SCHIZOPHRENIA
     Route: 048
     Dates: start: 20080201, end: 20090219
  2. MAGNESIUM VALPROATE [Concomitant]
     Indication: SCHIZOPHRENIA
     Route: 048
     Dates: start: 19990101, end: 20090219
  3. MAGNESIUM VALPROATE [Concomitant]
     Indication: PARANOIA
     Route: 048
     Dates: start: 19990101, end: 20090219
  4. LEVOMEPROMAZIN [Concomitant]
     Indication: SCHIZOPHRENIA
     Dosage: 1 PER DAY AT NIGHT
     Route: 048
     Dates: start: 19990101, end: 20090219
  5. LEVOMEPROMAZIN [Concomitant]
     Indication: PARANOIA
     Dosage: 1 PER DAY AT NIGHT
     Route: 048
     Dates: start: 19990101, end: 20090219
  6. CONTRACEPTIVES [Concomitant]
  7. HALDOL [Concomitant]
     Indication: SCHIZOPHRENIA
     Dosage: PRN
     Route: 030
  8. HALDOL [Concomitant]
     Indication: PARANOIA
     Dosage: PRN
     Route: 030

REACTIONS (1)
  - ACUTE ABDOMEN [None]
